FAERS Safety Report 6649798-2 (Version None)
Quarter: 2010Q1

REPORT INFORMATION
  Report Type: 
  Country: None (occurrence: None)
  Receive Date: 20100322
  Receipt Date: 20100310
  Transmission Date: 20100710
  Serious: Yes (Hospitalization)
  Sender: FDA-Public Use
  Company Number: TRP_06843_0210

PATIENT
  Sex: Female

DRUGS (2)
  1. RIBAPAK (NOT SPECIFIED) [Suspect]
     Indication: HEPATITIS C
     Dosage: ORAL
     Route: 048
     Dates: start: 20100125
  2. PEG-INTRON [Suspect]
     Indication: HEPATITIS C
     Dosage: SUBCUTANEOUS
     Route: 058
     Dates: start: 20100125

REACTIONS (2)
  - ASTHENIA [None]
  - PNEUMONIA STAPHYLOCOCCAL [None]
